FAERS Safety Report 5679427-6 (Version None)
Quarter: 2008Q1

REPORT INFORMATION
  Report Type: 
  Country: None (occurrence: None)
  Receive Date: 20080325
  Receipt Date: 20080314
  Transmission Date: 20080703
  Serious: Yes (Other)
  Sender: FDA-Public Use
  Company Number: US-ELI_LILLY_AND_COMPANY-US200803003386

PATIENT
  Sex: Female

DRUGS (2)
  1. CYMBALTA [Suspect]
     Dosage: 60 MG, DAILY (1/D)
  2. PERCOCET [Concomitant]

REACTIONS (3)
  - HALLUCINATION [None]
  - HOMICIDAL IDEATION [None]
  - SUICIDAL IDEATION [None]
